FAERS Safety Report 20032735 (Version 1)
Quarter: 2021Q4

REPORT INFORMATION
  Report Type: Report from Study
  Country: CA (occurrence: CA)
  Receive Date: 20211104
  Receipt Date: 20211104
  Transmission Date: 20220303
  Serious: Yes (Hospitalization, Other)
  Sender: FDA-Public Use
  Company Number: CA-ABBVIE-21K-028-4128578-00

PATIENT
  Sex: Female

DRUGS (2)
  1. RINVOQ [Suspect]
     Active Substance: UPADACITINIB
     Indication: Rheumatoid arthritis
     Route: 048
     Dates: start: 20210208, end: 202107
  2. RINVOQ [Suspect]
     Active Substance: UPADACITINIB
     Route: 048
     Dates: start: 2021

REACTIONS (7)
  - Ureteritis [Recovered/Resolved]
  - Rheumatoid arthritis [Recovering/Resolving]
  - Abdominal discomfort [Unknown]
  - Pelvic pain [Unknown]
  - Feeding disorder [Unknown]
  - Vomiting [Unknown]
  - Nephritis [Unknown]

NARRATIVE: CASE EVENT DATE: 20210101
